FAERS Safety Report 24371774 (Version 1)
Quarter: 2024Q3

REPORT INFORMATION
  Report Type: Spontaneous
  Country: US (occurrence: None)
  Receive Date: 20240926
  Receipt Date: 20240926
  Transmission Date: 20241017
  Serious: Yes (Disabling)
  Sender: Public
  Company Number: None

PATIENT
  Age: 66 Year
  Sex: Male
  Weight: 63 kg

DRUGS (3)
  1. LEXAPRO [Suspect]
     Active Substance: ESCITALOPRAM OXALATE
     Indication: Anxiety
     Dates: start: 20170608, end: 20171209
  2. CLONAZEPAM [Concomitant]
     Active Substance: CLONAZEPAM
  3. TIZANIDINE [Concomitant]
     Active Substance: TIZANIDINE

REACTIONS (3)
  - Painful erection [None]
  - Spontaneous penile erection [None]
  - Insomnia [None]

NARRATIVE: CASE EVENT DATE: 20170608
